FAERS Safety Report 8645412 (Version 6)
Quarter: 2013Q2

REPORT INFORMATION
  Report Type: Report from Study
  Country: DE (occurrence: DE)
  Receive Date: 20120702
  Receipt Date: 20130408
  Transmission Date: 20140414
  Serious: Yes (Life-Threatening, Hospitalization)
  Sender: FDA-Public Use
  Company Number: PHHO2012DE009540

PATIENT
  Age: 54 Year
  Sex: Female
  Weight: 58 kg

DRUGS (7)
  1. FTY [Suspect]
     Indication: MULTIPLE SCLEROSIS
     Dosage: 0.5 MG, UNK
     Route: 048
     Dates: start: 20110125
  2. ASS [Concomitant]
     Dosage: 100 MG, QD
  3. ISCOVER [Concomitant]
     Dosage: UNK
  4. ANTIHYPERTENSIVES [Concomitant]
  5. DELIX [Concomitant]
     Dosage: UNK
  6. METOPROLOL SUCCINATE [Concomitant]
     Dosage: 47.5 MG, QD
  7. PANTOZOL [Concomitant]
     Dosage: 20 MG, QD

REACTIONS (2)
  - Myocardial infarction [Recovered/Resolved]
  - Dyspnoea [Recovered/Resolved]
